FAERS Safety Report 7103573-3 (Version None)
Quarter: 2010Q4

REPORT INFORMATION
  Report Type: 
  Country: None (occurrence: None)
  Receive Date: 20101115
  Receipt Date: 20101108
  Transmission Date: 20110411
  Serious: Yes (Other)
  Sender: FDA-Public Use
  Company Number: US-PFIZER INC-2010143419

PATIENT
  Sex: Female
  Weight: 45.35 kg

DRUGS (1)
  1. LYRICA [Suspect]
     Indication: FIBROMYALGIA
     Dosage: 50 MG, DAILY
     Route: 048
     Dates: start: 20100901

REACTIONS (11)
  - ASTHENIA [None]
  - BLOOD PRESSURE INCREASED [None]
  - CONSTIPATION [None]
  - CROHN'S DISEASE [None]
  - DECREASED APPETITE [None]
  - FATIGUE [None]
  - HEARING IMPAIRED [None]
  - OROPHARYNGEAL PAIN [None]
  - PALPITATIONS [None]
  - PANIC ATTACK [None]
  - WEIGHT DECREASED [None]
